FAERS Safety Report 6163327-1 (Version None)
Quarter: 2009Q2

REPORT INFORMATION
  Report Type: 
  Country: None (occurrence: None)
  Receive Date: 20090420
  Receipt Date: 20090406
  Transmission Date: 20091009
  Serious: Yes (Other)
  Sender: FDA-Public Use
  Company Number: ACO_00537_2009

PATIENT
  Age: 54 Year
  Sex: Female

DRUGS (11)
  1. TIZANIDINE HCL [Suspect]
     Indication: HEADACHE
     Dosage: DF ORAL
     Route: 048
     Dates: start: 20080821
  2. TIZANIDINE HCL [Suspect]
     Indication: MUSCULOSKELETAL STIFFNESS
     Dosage: DF ORAL
     Route: 048
     Dates: start: 20080821
  3. PURSENNID /01627401/ [Concomitant]
  4. VOLTAREN /00372303/ [Concomitant]
  5. ASPIRIN [Concomitant]
  6. BLOPRESS [Concomitant]
  7. ADALAT [Concomitant]
  8. CRESTOR /01588602/ [Concomitant]
  9. LAXOBERON [Concomitant]
  10. PROTECADIN [Concomitant]
  11. BUSCOPAN /00008702/ [Concomitant]

REACTIONS (2)
  - MEMORY IMPAIRMENT [None]
  - SUBARACHNOID HAEMORRHAGE [None]
